FAERS Safety Report 14009186 (Version 2)
Quarter: 2017Q4

REPORT INFORMATION
  Report Type: Spontaneous
  Country: IT (occurrence: IT)
  Receive Date: 20170925
  Receipt Date: 20171115
  Transmission Date: 20180321
  Serious: Yes (Hospitalization, Other)
  Sender: FDA-Public Use
  Company Number: IT-IPSEN BIOPHARMACEUTICALS, INC.-2017-10924

PATIENT
  Age: 70 Year
  Sex: Male
  Weight: 71 kg

DRUGS (11)
  1. LX1606 [Concomitant]
     Indication: CARCINOID SYNDROME
     Route: 048
     Dates: start: 20160119, end: 20170904
  2. LANREOTIDE 120 MG [Suspect]
     Active Substance: LANREOTIDE
     Indication: PANCREATIC NEUROENDOCRINE TUMOUR
     Dosage: 120 MG
     Route: 058
     Dates: start: 20150808
  3. EFFENTORA [Concomitant]
     Active Substance: FENTANYL CITRATE
     Indication: TUMOUR PAIN
     Route: 062
     Dates: start: 201406, end: 20170908
  4. EFFENTORA [Concomitant]
     Active Substance: FENTANYL CITRATE
     Route: 062
     Dates: start: 20170915
  5. RANITIDINE. [Concomitant]
     Active Substance: RANITIDINE
     Indication: GASTRITIS PROPHYLAXIS
     Route: 058
     Dates: start: 201703
  6. OLMESARTAN MEDOXOMIL. [Concomitant]
     Active Substance: OLMESARTAN MEDOXOMIL
     Indication: HYPERTENSION
     Route: 048
     Dates: start: 1975
  7. TENORETIC [Concomitant]
     Active Substance: ATENOLOL\CHLORTHALIDONE
     Indication: HYPERTENSION
     Route: 048
     Dates: start: 1975
  8. FENTANYL. [Concomitant]
     Active Substance: FENTANYL
     Indication: TUMOUR PAIN
     Route: 062
     Dates: start: 201406, end: 201702
  9. EFFENTORA [Concomitant]
     Active Substance: FENTANYL CITRATE
     Route: 062
     Dates: start: 20170909, end: 20170914
  10. CAPECITABINE. [Concomitant]
     Active Substance: CAPECITABINE
     Indication: CHEMOTHERAPY
     Route: 048
     Dates: start: 201703, end: 20170315
  11. OCTREOTIDE. [Concomitant]
     Active Substance: OCTREOTIDE
     Indication: CARCINOID SYNDROME
     Route: 058
     Dates: start: 200907

REACTIONS (7)
  - Neoplasm prostate [Not Recovered/Not Resolved]
  - Myocardial infarction [Recovered/Resolved]
  - Inappropriate schedule of drug administration [Unknown]
  - Arthralgia [Recovered/Resolved]
  - Abdominal pain upper [Recovered/Resolved]
  - Coronary artery disease [Unknown]
  - Abdominal pain [Unknown]

NARRATIVE: CASE EVENT DATE: 20151024
